FAERS Safety Report 19274963 (Version 1)
Quarter: 2021Q2

REPORT INFORMATION
  Report Type: Spontaneous
  Country: GB (occurrence: GB)
  Receive Date: 20210519
  Receipt Date: 20210519
  Transmission Date: 20210717
  Serious: Yes (Other)
  Sender: FDA-Public Use
  Company Number: GB-AMGEN-GBRSP2021074285

PATIENT
  Sex: Male

DRUGS (3)
  1. AMGEVITA [Suspect]
     Active Substance: ADALIMUMAB
     Dosage: 10 MILLIGRAM
     Route: 058
  2. AMGEVITA [Suspect]
     Active Substance: ADALIMUMAB
     Indication: JUVENILE IDIOPATHIC ARTHRITIS
     Dosage: 20 MILLIGRAM, Q2WK
     Route: 058
     Dates: start: 2019
  3. AMGEVITA [Suspect]
     Active Substance: ADALIMUMAB
     Dosage: 15 MILLIGRAM
     Route: 058

REACTIONS (1)
  - Juvenile idiopathic arthritis [Unknown]
